FAERS Safety Report 6402583-9 (Version None)
Quarter: 2009Q4

REPORT INFORMATION
  Report Type: 
  Country: None (occurrence: None)
  Receive Date: 20091009
  Receipt Date: 20090929
  Transmission Date: 20100525
  Serious: Yes (Death, Hospitalization)
  Sender: FDA-Public Use
  Company Number: 1000003593

PATIENT
  Age: 59 Year
  Sex: Female
  Weight: 42 kg

DRUGS (4)
  1. ESCITALOPRAM (ESCITALOPRAM OXALATE) (TABLETS) [Suspect]
     Indication: DEPRESSION
     Dosage: 5 OR 10 MG (1 IN 1 D), ORAL
     Route: 048
     Dates: start: 20080110, end: 20081201
  2. SERESTA [Concomitant]
  3. BENERVA [Concomitant]
  4. NICOBION [Concomitant]

REACTIONS (2)
  - LOSS OF CONSCIOUSNESS [None]
  - MENINGORRHAGIA [None]
